FAERS Safety Report 6159415-6 (Version None)
Quarter: 2009Q2

REPORT INFORMATION
  Report Type: 
  Country: None (occurrence: None)
  Receive Date: 20090417
  Receipt Date: 20090410
  Transmission Date: 20091009
  Serious: Yes (Hospitalization, Other)
  Sender: FDA-Public Use
  Company Number: PHHY2009JP13824

PATIENT
  Age: 69 Year
  Sex: Male

DRUGS (1)
  1. TEGRETOL [Suspect]
     Indication: NEURALGIA
     Dosage: 1 DF
     Route: 048
     Dates: start: 20090327, end: 20090406

REACTIONS (7)
  - ALANINE AMINOTRANSFERASE INCREASED [None]
  - ALTERED STATE OF CONSCIOUSNESS [None]
  - ASPARTATE AMINOTRANSFERASE INCREASED [None]
  - DEHYDRATION [None]
  - DRUG ERUPTION [None]
  - LIVER DISORDER [None]
  - PYREXIA [None]
